FAERS Safety Report 18667587 (Version 1)
Quarter: 2020Q4

REPORT INFORMATION
  Report Type: Spontaneous
  Country: SE (occurrence: SE)
  Receive Date: 20201228
  Receipt Date: 20201228
  Transmission Date: 20210114
  Serious: Yes (Disabling)
  Sender: FDA-Public Use
  Company Number: SE-BRISTOL-MYERS SQUIBB COMPANY-BMS-2020-110072

PATIENT
  Age: 88 Year
  Sex: Female

DRUGS (1)
  1. ELIQUIS [Suspect]
     Active Substance: APIXABAN
     Dosage: 10 MILLIGRAM, PER DAY
     Route: 048
     Dates: start: 20200318

REACTIONS (7)
  - Haemoglobin decreased [Recovering/Resolving]
  - Intentional product use issue [Unknown]
  - Skin haemorrhage [Recovering/Resolving]
  - Product use issue [Recovering/Resolving]
  - Haematuria [Recovering/Resolving]
  - Chest pain [Recovering/Resolving]
  - Vaginal haemorrhage [Recovering/Resolving]

NARRATIVE: CASE EVENT DATE: 20200318
